FAERS Safety Report 6404458-8 (Version None)
Quarter: 2009Q4

REPORT INFORMATION
  Report Type: 
  Country: None (occurrence: None)
  Receive Date: 20091016
  Receipt Date: 20090806
  Transmission Date: 20100525
  Serious: No
  Sender: FDA-Public Use
  Company Number: US-ALEXION-A200900672

PATIENT

DRUGS (2)
  1. SOLIRIS [Suspect]
     Dosage: INDUCTION PHASE
  2. SOLIRIS [Suspect]
     Dosage: MAINTENANCE PHASE

REACTIONS (1)
  - BLOOD LACTATE DEHYDROGENASE ABNORMAL [None]
